FAERS Safety Report 9280511 (Version 1)
Quarter: 2013Q1

REPORT INFORMATION
  Report Type: Spontaneous
  Country: GB (occurrence: None)
  Receive Date: 20130301
  Receipt Date: 20130301
  Transmission Date: 20140127
  Serious: Yes (Death)
  Sender: FDA-Public Use
  Company Number: 220602

PATIENT
  Age: 89 Year
  Sex: Female
  Weight: 90 kg

DRUGS (2)
  1. INNOHEP (TINZAPARIN SODIUM) [Suspect]
     Indication: ATRIAL FIBRILLATION
     Route: 050
     Dates: start: 20130126, end: 20130129
  2. FUROSEMIDE (FUROSEMIDE) [Concomitant]

REACTIONS (6)
  - Off label use [None]
  - Hypovolaemic shock [None]
  - Arterial haemorrhage [None]
  - Abdominal wall haematoma [None]
  - Multi-organ failure [None]
  - Treatment failure [None]
